FAERS Safety Report 5592622-X (Version None)
Quarter: 2008Q1

REPORT INFORMATION
  Report Type: 
  Country: None (occurrence: None)
  Receive Date: 20080114
  Receipt Date: 20080101
  Transmission Date: 20080703
  Serious: Yes (Death, Hospitalization)
  Sender: FDA-Public Use
  Company Number: 2006-02145

PATIENT
  Age: 66 Year
  Sex: Male
  Weight: 48 kg

DRUGS (2)
  1. VELCADE [Suspect]
     Indication: SQUAMOUS CELL CARCINOMA
     Dosage: 1.30 MG/M2, IV BOLUS
     Route: 040
     Dates: start: 20060710, end: 20060807
  2. IRINOTECAN HCL [Suspect]
     Indication: SQUAMOUS CELL CARCINOMA
     Dosage: 125.00 MG/M2, INTRAVENOUS
     Route: 042
     Dates: start: 20060710, end: 20060807

REACTIONS (11)
  - ABDOMINAL PAIN [None]
  - DIARRHOEA [None]
  - HYPOTENSION [None]
  - HYPOXIA [None]
  - NEUTROPENIA [None]
  - NEUTROPHIL COUNT DECREASED [None]
  - PLATELET COUNT DECREASED [None]
  - PNEUMONIA [None]
  - REFUSAL OF TREATMENT BY RELATIVE [None]
  - TACHYCARDIA [None]
  - VOMITING [None]
